FAERS Safety Report 14425971 (Version 2)
Quarter: 2018Q1

REPORT INFORMATION
  Report Type: Spontaneous
  Country: US (occurrence: US)
  Receive Date: 20180123
  Receipt Date: 20180126
  Transmission Date: 20180509
  Serious: No
  Sender: FDA-Public Use
  Company Number: US-PFIZER INC-2018026638

PATIENT
  Age: 26 Year
  Sex: Male
  Weight: 127.1 kg

DRUGS (1)
  1. XYNTHA [Suspect]
     Active Substance: ANTIHEMOPHILIC FACTOR, HUMAN RECOMBINANT RESIDUES 743-1636 DELETED
     Indication: FACTOR VIII DEFICIENCY
     Dosage: 9000 UNITS, 3000 EVERY OTHER DAY ON MONDAY, WEDNESDAY, AND FRIDAY, IV INFUSION
     Route: 042
     Dates: start: 201702, end: 20180117

REACTIONS (2)
  - Product quality issue [Unknown]
  - Dizziness [Recovered/Resolved]

NARRATIVE: CASE EVENT DATE: 20180115
